FAERS Safety Report 4542557-6 (Version None)
Quarter: 2004Q4

REPORT INFORMATION
  Report Type: 
  Country: None (occurrence: None)
  Receive Date: 20041230
  Receipt Date: 20040716
  Transmission Date: 20050328
  Serious: Yes (Hospitalization)
  Sender: FDA-Public Use
  Company Number: GB-MERCK-0407GBR00178

PATIENT
  Age: 61 Year
  Sex: Female
  Weight: 77 kg

DRUGS (4)
  1. ZOCOR [Suspect]
     Indication: BLOOD CHOLESTEROL INCREASED
     Route: 048
     Dates: start: 20040112
  2. BENDROFLUMETHIAZIDE [Concomitant]
     Indication: HYPERTENSION
     Route: 048
     Dates: start: 20030214
  3. PRINIVIL [Concomitant]
     Indication: HYPERTENSION
     Route: 048
     Dates: start: 20030827
  4. ASPIRIN [Concomitant]
     Indication: RETINAL ARTERY OCCLUSION
     Route: 048
     Dates: start: 20040112

REACTIONS (3)
  - ABDOMINAL PAIN UPPER [None]
  - BILIARY COLIC [None]
  - CHOLECYSTITIS [None]
